FAERS Safety Report 22985215 (Version 3)
Quarter: 2023Q4

REPORT INFORMATION
  Report Type: Spontaneous
  Country: DE (occurrence: DE)
  Receive Date: 20230926
  Receipt Date: 20231010
  Transmission Date: 20240110
  Serious: Yes (Other)
  Sender: FDA-Public Use
  Company Number: DE-EXELTIS PHARMACEUTICAL HOLDING, S.L.-2309DE06421

PATIENT
  Age: 56 Year
  Sex: Female
  Weight: 84 kg

DRUGS (5)
  1. PROGESTERONE [Suspect]
     Active Substance: PROGESTERONE
     Indication: Menopausal symptoms
     Dosage: 1 DOSAGE FORM, QD, IN THE EVENING
     Route: 048
  2. PROGESTERONE [Suspect]
     Active Substance: PROGESTERONE
     Dosage: 1 UNK
     Route: 067
  3. PROGESTERONE [Suspect]
     Active Substance: PROGESTERONE
     Dosage: 1 DOSAGE FORM, QD
     Route: 048
  4. ESTRADIOL VALERATE [Concomitant]
     Active Substance: ESTRADIOL VALERATE
     Dosage: 2 PULLS, QD, SOMETIMES A LITTLE MORE
  5. LEVOTHYROXINE SODIUM [Concomitant]
     Active Substance: LEVOTHYROXINE SODIUM
     Dosage: 100 MICROGRAM, QD

REACTIONS (4)
  - Uterine haemorrhage [Not Recovered/Not Resolved]
  - Weight increased [Unknown]
  - Intentional product use issue [Unknown]
  - Dyspepsia [Recovered/Resolved]
